FAERS Safety Report 6962234-1 (Version None)
Quarter: 2010Q3

REPORT INFORMATION
  Report Type: 
  Country: None (occurrence: None)
  Receive Date: 20100830
  Receipt Date: 20100818
  Transmission Date: 20110219
  Serious: Yes (Other)
  Sender: FDA-Public Use
  Company Number: AUR-APL-2010-02084

PATIENT
  Age: 56 Year
  Sex: Male

DRUGS (7)
  1. METFORMIN [Suspect]
     Indication: DIABETES MELLITUS
  2. FENOFIBRATE [Suspect]
  3. GLUCOPHAGE XR [Suspect]
     Indication: DIABETES MELLITUS
     Dosage: 500MG, TWICE DAILY
  4. LIPITOR [Suspect]
  5. NATEGLINIDE [Suspect]
  6. PIOGLITAZONE [Suspect]
  7. PROTON PUMP INHIBITOR [Suspect]

REACTIONS (1)
  - HEPATITIS [None]
